FAERS Safety Report 20076076 (Version 2)
Quarter: 2021Q4

REPORT INFORMATION
  Report Type: Spontaneous
  Country: US (occurrence: US)
  Receive Date: 20211116
  Receipt Date: 20211207
  Transmission Date: 20220303
  Serious: Yes (Other)
  Sender: FDA-Public Use
  Company Number: US-BAYER-2021A248388

PATIENT
  Age: 20 Year
  Sex: Male

DRUGS (2)
  1. KOGENATE FS [Suspect]
     Active Substance: ANTIHEMOPHILIC FACTOR, HUMAN RECOMBINANT
     Indication: Factor VIII deficiency
     Dosage: 4500 U, PRN
     Route: 042
     Dates: start: 20211015
  2. KOGENATE FS [Suspect]
     Active Substance: ANTIHEMOPHILIC FACTOR, HUMAN RECOMBINANT
     Indication: Factor VIII deficiency
     Dosage: 4500 U X 4 DOSES FOR RIGHT HAND MIDDLE FINGER WAS JAMMED
     Route: 042

REACTIONS (2)
  - Haemarthrosis [Recovered/Resolved]
  - Limb injury [None]

NARRATIVE: CASE EVENT DATE: 20210630
